FAERS Safety Report 24938192 (Version 1)
Quarter: 2025Q1

REPORT INFORMATION
  Report Type: Spontaneous
  Country: FR (occurrence: FR)
  Receive Date: 20250206
  Receipt Date: 20250206
  Transmission Date: 20250409
  Serious: Yes (Hospitalization)
  Sender: MYLAN
  Company Number: None

PATIENT
  Age: 79 Year
  Sex: Female
  Weight: 52.1 kg

DRUGS (3)
  1. DOXYCYCLINE [Suspect]
     Active Substance: DOXYCYCLINE
     Indication: Septic arthritis staphylococcal
     Dosage: 100 MILLIGRAM, BID (100 MG MORNING AND EVENING) (200 MG, 1 DAY)
     Route: 048
     Dates: start: 20241017, end: 20241218
  2. DOXYCYCLINE [Suspect]
     Active Substance: DOXYCYCLINE
     Indication: Septic arthritis staphylococcal
     Route: 042
     Dates: start: 202409, end: 20241017
  3. DALBAVANCIN HYDROCHLORIDE [Suspect]
     Active Substance: DALBAVANCIN HYDROCHLORIDE
     Indication: Septic arthritis staphylococcal
     Dosage: 1500 MILLIGRAM, Q2W (1ST INFUSION ON 17/10/2024 2ND INFUSION ON 31/10/2024)
     Route: 042
     Dates: start: 20241017, end: 20241031

REACTIONS (2)
  - Inflammation [Recovering/Resolving]
  - Pancreatitis [Recovering/Resolving]

NARRATIVE: CASE EVENT DATE: 20241201
